FAERS Safety Report 25416720 (Version 1)
Quarter: 2025Q2

REPORT INFORMATION
  Report Type: Spontaneous
  Country: PL (occurrence: PL)
  Receive Date: 20250610
  Receipt Date: 20250610
  Transmission Date: 20250716
  Serious: Yes (Other)
  Sender: BRISTOL-MYERS SQUIBB COMPANY
  Company Number: PL-SUN PHARMACEUTICAL INDUSTRIES LTD-2025R1-509573

PATIENT
  Age: 65 Year
  Sex: Female

DRUGS (3)
  1. DASATINIB [Suspect]
     Active Substance: DASATINIB
     Indication: B-cell type acute leukaemia
     Dates: start: 202307
  2. DASATINIB [Suspect]
     Active Substance: DASATINIB
     Dates: start: 2023
  3. DEXAMETHASONE [Concomitant]
     Active Substance: DEXAMETHASONE
     Indication: B-cell type acute leukaemia
     Dates: start: 202307

REACTIONS (1)
  - Gastrointestinal toxicity [Unknown]

NARRATIVE: CASE EVENT DATE: 20230101
